FAERS Safety Report 13381002 (Version 1)
Quarter: 2017Q1

REPORT INFORMATION
  Report Type: Spontaneous
  Country: US (occurrence: US)
  Receive Date: 20170329
  Receipt Date: 20170329
  Transmission Date: 20170429
  Serious: Yes (Hospitalization, Other)
  Sender: FDA-Public Use
  Company Number: US-DUSA PHARMACEUTICALS, INC.-1064767

PATIENT
  Age: 85 Year
  Sex: Male

DRUGS (14)
  1. METFORMIN [Concomitant]
     Active Substance: METFORMIN HYDROCHLORIDE
  2. SIMVASTATIN. [Concomitant]
     Active Substance: SIMVASTATIN
  3. CENTRUM [Concomitant]
     Active Substance: VITAMINS
  4. ASPIRIN. [Concomitant]
     Active Substance: ASPIRIN
  5. CARVEDILOL. [Concomitant]
     Active Substance: CARVEDILOL
  6. VITAMIN A [Concomitant]
     Active Substance: VITAMIN A
  7. FLAXSEED [Concomitant]
     Active Substance: FLAX SEED
  8. LEVULAN KERASTICK [Suspect]
     Active Substance: AMINOLEVULINIC ACID HYDROCHLORIDE
     Indication: ACTINIC KERATOSIS
     Route: 061
     Dates: start: 20161031, end: 20161031
  9. QUINAPRIL. [Concomitant]
     Active Substance: QUINAPRIL
  10. MELATONIN [Concomitant]
     Active Substance: MELATONIN
  11. FISH OIL [Concomitant]
     Active Substance: FISH OIL
  12. HYALURONIC ACID INJECTION [Suspect]
     Active Substance: HYALURONIC ACID
     Dates: start: 20161031, end: 20161031
  13. SILDENAFIL. [Concomitant]
     Active Substance: SILDENAFIL
  14. GARLIC. [Concomitant]
     Active Substance: GARLIC

REACTIONS (5)
  - Anaphylactic reaction [Recovered/Resolved]
  - Dyspnoea [Recovered/Resolved]
  - Erythema [Recovered/Resolved]
  - Swelling face [Recovered/Resolved]
  - Urticaria [Recovered/Resolved]

NARRATIVE: CASE EVENT DATE: 20161031
